FAERS Safety Report 19000201 (Version 1)
Quarter: 2021Q1

REPORT INFORMATION
  Report Type: Report from Study
  Country: US (occurrence: US)
  Receive Date: 20210312
  Receipt Date: 20210312
  Transmission Date: 20210420
  Serious: Yes (Hospitalization, Other)
  Sender: FDA-Public Use
  Company Number: US-BRISTOL-MYERS SQUIBB COMPANY-BMS-2021-022064

PATIENT
  Age: 43 Year
  Sex: Female

DRUGS (3)
  1. APIXABAN [Suspect]
     Active Substance: APIXABAN
     Dosage: UNK
     Route: 048
     Dates: start: 20210224, end: 20210224
  2. APIXABAN [Suspect]
     Active Substance: APIXABAN
     Dosage: UNK
     Route: 048
     Dates: start: 20210226
  3. APIXABAN [Suspect]
     Active Substance: APIXABAN
     Indication: PULMONARY EMBOLISM
     Dosage: UNK UNK, BID
     Route: 048
     Dates: start: 20210206, end: 20210222

REACTIONS (11)
  - Nausea [Unknown]
  - Blood pressure decreased [Unknown]
  - Menorrhagia [Unknown]
  - Drug ineffective [Unknown]
  - Abdominal pain upper [Unknown]
  - Haematochezia [Unknown]
  - Asthenia [Unknown]
  - Polymenorrhoea [Unknown]
  - Constipation [Unknown]
  - Haemoglobin decreased [Unknown]
  - Formication [Unknown]

NARRATIVE: CASE EVENT DATE: 20210218
